FAERS Safety Report 4918426-6 (Version None)
Quarter: 2006Q1

REPORT INFORMATION
  Report Type: 
  Country: None (occurrence: None)
  Receive Date: 20060217
  Receipt Date: 20060217
  Transmission Date: 20060701
  Serious: Yes (Other)
  Sender: FDA-Public Use
  Company Number: None

PATIENT
  Sex: Male

DRUGS (2)
  1. ELIDEL [Suspect]
  2. PROTOPIC [Suspect]

REACTIONS (1)
  - T-CELL LYMPHOMA [None]
